FAERS Safety Report 25238974 (Version 1)
Quarter: 2025Q2

REPORT INFORMATION
  Report Type: Spontaneous
  Country: FR (occurrence: FR)
  Receive Date: 20250425
  Receipt Date: 20250425
  Transmission Date: 20250717
  Serious: Yes (Other)
  Sender: AUROBINDO
  Company Number: FR-AFSSAPS-LL2025000613

PATIENT
  Age: 41 Year
  Sex: Female

DRUGS (2)
  1. FOSFOMYCIN [Suspect]
     Active Substance: FOSFOMYCIN
     Indication: Urinary tract infection
     Route: 065
     Dates: start: 20250109
  2. METRONIDAZOLE [Suspect]
     Active Substance: METRONIDAZOLE
     Indication: Urinary tract infection
     Route: 065
     Dates: start: 20250109

REACTIONS (1)
  - Clostridial infection [Not Recovered/Not Resolved]

NARRATIVE: CASE EVENT DATE: 20250126
